FAERS Safety Report 12876096 (Version 1)
Quarter: 2016Q4

REPORT INFORMATION
  Report Type: Spontaneous
  Country: US (occurrence: US)
  Receive Date: 20161024
  Receipt Date: 20161024
  Transmission Date: 20170207
  Serious: No
  Sender: FDA-Public Use
  Company Number: US-JAZZ-2016-US-015369

PATIENT
  Sex: Male

DRUGS (10)
  1. FEXOFENADINE HCL [Concomitant]
     Active Substance: FEXOFENADINE HYDROCHLORIDE
  2. VYVANSE [Concomitant]
     Active Substance: LISDEXAMFETAMINE DIMESYLATE
  3. FLOMAX [Concomitant]
     Active Substance: TAMSULOSIN HYDROCHLORIDE
  4. ANDROGEL [Concomitant]
     Active Substance: TESTOSTERONE
  5. PEG 3350 [Concomitant]
     Active Substance: POLYETHYLENE GLYCOL 3350
  6. XYREM [Suspect]
     Active Substance: SODIUM OXYBATE
     Indication: NARCOLEPSY
     Dosage: 2.25 G, BID
     Route: 048
     Dates: start: 201607
  7. FIBER LAXATIVE [Concomitant]
     Active Substance: CALCIUM POLYCARBOPHIL
  8. PRILOSEC [Concomitant]
     Active Substance: OMEPRAZOLE MAGNESIUM
  9. MULTIVITAMINS [Concomitant]
     Active Substance: VITAMINS
  10. VIAGRA [Concomitant]
     Active Substance: SILDENAFIL CITRATE

REACTIONS (1)
  - Respiratory rate decreased [Not Recovered/Not Resolved]

NARRATIVE: CASE EVENT DATE: 2016
